FAERS Safety Report 9637152 (Version 1)
Quarter: 2013Q4

REPORT INFORMATION
  Report Type: Spontaneous
  Country: US (occurrence: US)
  Receive Date: 20131022
  Receipt Date: 20131022
  Transmission Date: 20140711
  Serious: No
  Sender: FDA-Public Use
  Company Number: US-009507513-1310USA009610

PATIENT
  Sex: Female

DRUGS (1)
  1. VYTORIN [Suspect]
     Dosage: 4 BLISTERS OF 7 TABS (1X28) (DOSAGE/FREQUENCY UNKNOWN)
     Route: 048

REACTIONS (1)
  - Drug ineffective [Unknown]
